FAERS Safety Report 25411093 (Version 2)
Quarter: 2025Q3

REPORT INFORMATION
  Report Type: Report from Study
  Country: JP (occurrence: JP)
  Receive Date: 20250609
  Receipt Date: 20250707
  Transmission Date: 20251020
  Serious: Yes (Death, Hospitalization, Other)
  Sender: ROCHE
  Company Number: JP-CHUGAI-2025017812

PATIENT
  Age: 62 Year
  Sex: Male
  Weight: 62 kg

DRUGS (8)
  1. ENSPRYNG [Suspect]
     Active Substance: SATRALIZUMAB-MWGE
     Indication: Neuromyelitis optica spectrum disorder
     Dosage: 120 MILLIGRAM, ONCE/2WEEKS
     Route: 058
     Dates: start: 20210217, end: 20210317
  2. ENSPRYNG [Suspect]
     Active Substance: SATRALIZUMAB-MWGE
     Dosage: 120 MILLIGRAM, ONCE/4WEEKS
     Route: 058
     Dates: start: 20210314, end: 20250408
  3. PREDONINE [Suspect]
     Active Substance: PREDNISOLONE
     Indication: Neuromyelitis optica spectrum disorder
     Dosage: 20 MILLIGRAM/DAY
     Route: 048
     Dates: start: 20210217
  4. PREDONINE [Suspect]
     Active Substance: PREDNISOLONE
     Dosage: 2.5 MILLIGRAM/DAY
     Route: 048
     Dates: end: 20230411
  5. PREDONINE [Suspect]
     Active Substance: PREDNISOLONE
     Dosage: 15 MILLIGRAM/DAY
     Route: 048
  6. PREDONINE [Suspect]
     Active Substance: PREDNISOLONE
     Route: 048
  7. PREDONINE [Suspect]
     Active Substance: PREDNISOLONE
     Route: 048
  8. CYCLOSPORINE [Concomitant]
     Active Substance: CYCLOSPORINE
     Indication: Neuromyelitis optica spectrum disorder
     Route: 065
     Dates: start: 20210217, end: 20220830

REACTIONS (9)
  - Cardio-respiratory arrest [Fatal]
  - Myelopathy [Recovering/Resolving]
  - Compression fracture [Recovering/Resolving]
  - Rib fracture [Recovered/Resolved]
  - Oedema peripheral [Recovered/Resolved]
  - Presbyacusis [Not Recovered/Not Resolved]
  - Cataract [Not Recovered/Not Resolved]
  - Fall [Unknown]
  - Periodontitis [Recovered/Resolved]

NARRATIVE: CASE EVENT DATE: 20210301
